FAERS Safety Report 9417302 (Version 1)
Quarter: 2013Q3

REPORT INFORMATION
  Report Type: Spontaneous
  Country: US (occurrence: US)
  Receive Date: 20130724
  Receipt Date: 20130724
  Transmission Date: 20140515
  Serious: No
  Sender: FDA-Public Use
  Company Number: US-BRISTOL-MYERS SQUIBB COMPANY-18920835

PATIENT
  Age: 74 Year
  Sex: Male

DRUGS (6)
  1. ELIQUIS [Suspect]
     Dosage: 1 DF: 2.5 UNITS NOS
  2. PLAVIX [Concomitant]
  3. CRESTOR [Concomitant]
  4. MAGNESIUM [Concomitant]
  5. VITAMIN D [Concomitant]
  6. COENZYME-Q10 [Concomitant]

REACTIONS (2)
  - Dizziness [Unknown]
  - Somnolence [Unknown]
